FAERS Safety Report 23538345 (Version 1)
Quarter: 2024Q1

REPORT INFORMATION
  Report Type: Spontaneous
  Country: US (occurrence: US)
  Receive Date: 20240219
  Receipt Date: 20240219
  Transmission Date: 20240409
  Serious: Yes (Other)
  Sender: FDA-Public Use
  Company Number: US-GSKCCFUS-Case-01934317_AE-107531

PATIENT

DRUGS (2)
  1. ADVAIR DISKUS [Suspect]
     Active Substance: FLUTICASONE PROPIONATE\SALMETEROL XINAFOATE
     Indication: Restrictive pulmonary disease
     Dosage: UNK, 500/50MCG
  2. TRELEGY ELLIPTA [Suspect]
     Active Substance: FLUTICASONE FUROATE\UMECLIDINIUM BROMIDE\VILANTEROL TRIFENATATE
     Indication: Restrictive pulmonary disease
     Dosage: UNK, 200/62.5/25MCG

REACTIONS (3)
  - Stenotrophomonas infection [Not Recovered/Not Resolved]
  - Product use in unapproved indication [Unknown]
  - Product confusion [Unknown]

NARRATIVE: CASE EVENT DATE: 20231201
